FAERS Safety Report 19977618 (Version 1)
Quarter: 2021Q4

REPORT INFORMATION
  Report Type: Spontaneous
  Country: US (occurrence: US)
  Receive Date: 20211021
  Receipt Date: 20211021
  Transmission Date: 20220303
  Serious: Yes (Other)
  Sender: FDA-Public Use
  Company Number: US-NOVARTISPH-NVSC2021US235775

PATIENT
  Age: 75 Year
  Sex: Male

DRUGS (8)
  1. DOCETAXEL [Suspect]
     Active Substance: DOCETAXEL
     Indication: Hormone-refractory prostate cancer
     Dosage: 75 MG/M2 (FROM 07 NOV 2019)
     Route: 065
     Dates: end: 20200225
  2. BICALUTAMIDE [Suspect]
     Active Substance: BICALUTAMIDE
     Indication: Hormone-refractory prostate cancer
     Dosage: UNK
     Route: 065
     Dates: start: 20190821
  3. CABAZITAXEL [Suspect]
     Active Substance: CABAZITAXEL
     Indication: Hormone-refractory prostate cancer
     Dosage: 20 MG/M2 (FROM 18 MAY 2021)
     Route: 065
  4. PREDNISONE [Suspect]
     Active Substance: PREDNISONE
     Indication: Hormone-refractory prostate cancer
     Dosage: UNK
     Route: 065
  5. ABIRATERONE ACETATE [Suspect]
     Active Substance: ABIRATERONE ACETATE
     Indication: Hormone-refractory prostate cancer
     Dosage: UNK (FROM 07 JUN 2020)
     Route: 065
     Dates: end: 20201001
  6. OLAPARIB [Suspect]
     Active Substance: OLAPARIB
     Indication: Hormone-refractory prostate cancer
     Dosage: 300 MG, BID (18 SEP 2020)
     Route: 065
     Dates: end: 20200921
  7. OLAPARIB [Suspect]
     Active Substance: OLAPARIB
     Dosage: 300 MG, BID
     Route: 065
  8. LUPRON [Suspect]
     Active Substance: LEUPROLIDE ACETATE
     Indication: Hormone-refractory prostate cancer
     Dosage: UNK
     Route: 065
     Dates: start: 20190917

REACTIONS (9)
  - Prostate cancer [Unknown]
  - Prostatic specific antigen increased [Unknown]
  - Metastases to bone [Unknown]
  - Weight decreased [Unknown]
  - Decreased appetite [Unknown]
  - Fatigue [Unknown]
  - Diarrhoea [Unknown]
  - Feeling abnormal [Unknown]
  - Radiation oesophagitis [Unknown]

NARRATIVE: CASE EVENT DATE: 20191021
